FAERS Safety Report 6681191-9 (Version None)
Quarter: 2010Q2

REPORT INFORMATION
  Report Type: 
  Country: None (occurrence: None)
  Receive Date: 20100414
  Receipt Date: 20100409
  Transmission Date: 20101027
  Serious: Yes (Other)
  Sender: FDA-Public Use
  Company Number: US-ELI_LILLY_AND_COMPANY-US201003006626

PATIENT
  Sex: Male

DRUGS (10)
  1. HUMULIN 50/50 [Suspect]
     Indication: DIABETES MELLITUS
     Dosage: 60 D/F, EACH MORNING
     Dates: start: 19900101
  2. HUMULIN 50/50 [Suspect]
     Dosage: 60 D/F, EACH EVENING
     Dates: start: 19900101
  3. HUMULIN 50/50 [Suspect]
     Dosage: 40 D/F, EACH MORNING
     Dates: start: 20090101
  4. HUMULIN 50/50 [Suspect]
     Dosage: 40 D/F, EACH EVENING
     Dates: start: 20090101
  5. HUMULIN 50/50 [Suspect]
     Dosage: 60 D/F, EACH MORNING
     Dates: start: 19900101, end: 20090101
  6. HUMULIN 50/50 [Suspect]
     Dosage: 60 D/F, EACH EVENING
     Dates: start: 19900101, end: 20090101
  7. HUMULIN 50/50 [Suspect]
     Dosage: 40 D/F, EACH MORNING
     Dates: start: 20090101
  8. HUMULIN 50/50 [Suspect]
     Dosage: 40 D/F, EACH EVENING
     Dates: start: 20090101
  9. HUMALOG MIX 50/50 [Suspect]
     Dosage: UNK, UNK
     Dates: start: 20080101
  10. METFORMIN HCL [Concomitant]

REACTIONS (3)
  - DRUG DISPENSING ERROR [None]
  - ISCHAEMIC STROKE [None]
  - WRONG DRUG ADMINISTERED [None]
